FAERS Safety Report 8225422-2 (Version None)
Quarter: 2012Q1

REPORT INFORMATION
  Report Type: 
  Country: None (occurrence: None)
  Receive Date: 20120321
  Receipt Date: 20120307
  Transmission Date: 20120608
  Serious: Yes (Hospitalization)
  Sender: FDA-Public Use
  Company Number: DE-AMGEN-DEUCT2012016351

PATIENT
  Age: 47 Year
  Sex: Female

DRUGS (6)
  1. ETANERCEPT [Suspect]
     Indication: RHEUMATOID ARTHRITIS
     Dosage: UNK
     Dates: start: 20080501, end: 20081001
  2. METHOTREXATE SODIUM [Suspect]
     Indication: RHEUMATOID ARTHRITIS
     Dosage: UNK
     Dates: start: 20051201, end: 20061201
  3. PREDNISONE [Concomitant]
     Indication: RHEUMATOID ARTHRITIS
     Dosage: UNK UNK, UNK
  4. ETANERCEPT [Suspect]
     Dosage: UNK
     Dates: start: 20081101, end: 20100415
  5. METHOTREXATE SODIUM [Suspect]
     Dosage: UNK
     Dates: start: 20081101, end: 20100415
  6. METHOTREXATE SODIUM [Suspect]
     Dosage: UNK
     Dates: start: 20070901, end: 20081001

REACTIONS (1)
  - BONE MARROW FAILURE [None]
